FAERS Safety Report 6340325-6 (Version None)
Quarter: 2009Q3

REPORT INFORMATION
  Report Type: 
  Country: None (occurrence: None)
  Receive Date: 20090904
  Receipt Date: 20070917
  Transmission Date: 20100115
  Serious: Yes (Other)
  Sender: FDA-Public Use
  Company Number: US-ASTRAZENECA-2006UW23021

PATIENT
  Age: 51 Year
  Sex: Female
  Weight: 89.8 kg

DRUGS (9)
  1. SEROQUEL [Suspect]
     Indication: INSOMNIA
     Route: 048
     Dates: start: 20010101
  2. SEROQUEL [Suspect]
     Dosage: 100-300 MG
     Route: 048
     Dates: start: 20021129
  3. CLOZARIL [Concomitant]
  4. HALDOL [Concomitant]
     Dates: start: 19980101
  5. RISPERDAL [Concomitant]
     Dates: start: 19980101
  6. THORAZINE [Concomitant]
     Dates: start: 19980101
  7. ZYPREXA [Concomitant]
     Dates: start: 19980101
  8. WELLBUTRIN [Concomitant]
     Dates: start: 20020101
  9. PAXIL [Concomitant]
     Dates: start: 20020101

REACTIONS (2)
  - DIABETES MELLITUS [None]
  - DIABETIC NEUROPATHY [None]
